FAERS Safety Report 8433358-7 (Version None)
Quarter: 2012Q2

REPORT INFORMATION
  Report Type: 
  Country: None (occurrence: None)
  Receive Date: 20120613
  Receipt Date: 20120611
  Transmission Date: 20120825
  Serious: No
  Sender: FDA-Public Use
  Company Number: US-BAYER-2012-058284

PATIENT
  Age: 76 Year
  Sex: Male
  Weight: 73 kg

DRUGS (4)
  1. ALEVE (CAPLET) [Suspect]
     Indication: ARTHRITIS
     Dosage: 2 ONCE DAILY
  2. ANTIHYPERTENSIVES [Concomitant]
  3. GABAPENTIN [Concomitant]
     Dosage: UNK
  4. IMMUNE GLOBULIN NOS [Concomitant]

REACTIONS (1)
  - NO ADVERSE EVENT [None]
